FAERS Safety Report 12647870 (Version 1)
Quarter: 2016Q3

REPORT INFORMATION
  Report Type: Spontaneous
  Country: US (occurrence: None)
  Receive Date: 20160811
  Receipt Date: 20160811
  Transmission Date: 20161109
  Serious: No
  Sender: FDA-Public Use
  Company Number: None

PATIENT
  Age: 67 Year
  Sex: Male

DRUGS (2)
  1. HARVONI [Suspect]
     Active Substance: LEDIPASVIR\SOFOSBUVIR
     Indication: CHRONIC HEPATITIS C
     Dates: start: 201607
  2. RIBASPHERE [Suspect]
     Active Substance: RIBAVIRIN
     Dates: start: 201607

REACTIONS (1)
  - Fatigue [None]

NARRATIVE: CASE EVENT DATE: 20160809
